FAERS Safety Report 5903630-0 (Version None)
Quarter: 2008Q3

REPORT INFORMATION
  Report Type: 
  Country: None (occurrence: None)
  Receive Date: 20080930
  Receipt Date: 20080919
  Transmission Date: 20090109
  Serious: Yes (Other)
  Sender: FDA-Public Use
  Company Number: FR-PFIZER INC-2008079470

PATIENT
  Sex: Female

DRUGS (2)
  1. INSPRA [Suspect]
     Indication: CARDIOMYOPATHY
     Dates: start: 20080916
  2. BURINEX [Concomitant]
     Indication: CARDIOMYOPATHY

REACTIONS (2)
  - CHEST DISCOMFORT [None]
  - TACHYCARDIA [None]
